FAERS Safety Report 25997629 (Version 5)
Quarter: 2025Q4

REPORT INFORMATION
  Report Type: Report from Study
  Country: US (occurrence: US)
  Receive Date: 20251104
  Receipt Date: 20251209
  Transmission Date: 20260118
  Serious: Yes (Other)
  Sender: ABBVIE
  Company Number: US-ABBVIE-6530667

PATIENT
  Age: 59 Year
  Sex: Female

DRUGS (4)
  1. LINZESS [Suspect]
     Active Substance: LINACLOTIDE
     Indication: Product used for unknown indication
     Dosage: LINZESS 290MG
     Route: 048
     Dates: start: 20201001
  2. Oxycodine [Concomitant]
     Indication: Product used for unknown indication
     Dosage: 10MG
  3. Alprazom [Concomitant]
     Indication: Product used for unknown indication
     Dosage: DOSE: 10MG
     Route: 065
  4. FLEXERIL [Concomitant]
     Active Substance: CYCLOBENZAPRINE HYDROCHLORIDE
     Indication: Product used for unknown indication
     Dosage: DOSE: 10 MG
     Route: 065

REACTIONS (5)
  - Complication associated with device [Unknown]
  - Stomach mass [Unknown]
  - Device related infection [Unknown]
  - Scar [Unknown]
  - Irritable bowel syndrome [Unknown]

NARRATIVE: CASE EVENT DATE: 20201001
